FAERS Safety Report 19912806 (Version 1)
Quarter: 2021Q4

REPORT INFORMATION
  Report Type: Spontaneous
  Country: US (occurrence: US)
  Receive Date: 20211004
  Receipt Date: 20211004
  Transmission Date: 20220303
  Serious: Yes (Other)
  Sender: FDA-Public Use
  Company Number: None

PATIENT
  Age: 24 Year
  Sex: Male
  Weight: 148.5 kg

DRUGS (1)
  1. REGEN-COV [Suspect]
     Active Substance: CASIRIVIMAB\IMDEVIMAB
     Indication: COVID-19
     Dates: start: 20211001, end: 20211001

REACTIONS (5)
  - Dizziness [None]
  - Headache [None]
  - Myalgia [None]
  - Muscle tightness [None]
  - Infusion related reaction [None]

NARRATIVE: CASE EVENT DATE: 20211001
